FAERS Safety Report 20396301 (Version 2)
Quarter: 2025Q3

REPORT INFORMATION
  Report Type: Report from Study
  Country: US (occurrence: US)
  Receive Date: 20220130
  Receipt Date: 20250814
  Transmission Date: 20251020
  Serious: Yes (Hospitalization, Other)
  Sender: RANBAXY
  Company Number: US-SUN PHARMACEUTICAL INDUSTRIES LTD-2021R1-322187

PATIENT
  Age: 82 Year
  Sex: Male
  Weight: 121.54 kg

DRUGS (21)
  1. TILDRAKIZUMAB [Suspect]
     Active Substance: TILDRAKIZUMAB
     Indication: Psoriasis
     Route: 058
     Dates: start: 20210427, end: 20210929
  2. TILDRAKIZUMAB [Suspect]
     Active Substance: TILDRAKIZUMAB
     Route: 058
     Dates: start: 20210617, end: 20210929
  3. Calcipotriene-betamethasone [Concomitant]
     Indication: Product used for unknown indication
     Route: 065
  4. METFORMIN [Concomitant]
     Active Substance: METFORMIN HYDROCHLORIDE
     Indication: Product used for unknown indication
     Route: 065
  5. VASCEPA [Concomitant]
     Active Substance: ICOSAPENT ETHYL
     Indication: Product used for unknown indication
     Route: 065
  6. CATAPRES [Concomitant]
     Active Substance: CLONIDINE HYDROCHLORIDE
     Indication: Product used for unknown indication
     Route: 065
  7. ZYLOPRIM [Concomitant]
     Active Substance: ALLOPURINOL
     Indication: Product used for unknown indication
     Route: 065
  8. ELIQUIS [Concomitant]
     Active Substance: APIXABAN
     Indication: Product used for unknown indication
     Route: 065
  9. DIOVAN [Concomitant]
     Active Substance: VALSARTAN
     Indication: Product used for unknown indication
     Route: 065
  10. INSULIN GLARGINE [Concomitant]
     Active Substance: INSULIN GLARGINE
     Indication: Product used for unknown indication
     Route: 065
  11. LYRICA [Concomitant]
     Active Substance: PREGABALIN
     Indication: Product used for unknown indication
     Route: 065
  12. PROTONIX [Concomitant]
     Active Substance: PANTOPRAZOLE SODIUM
     Indication: Product used for unknown indication
     Route: 065
  13. REQUIP [Concomitant]
     Active Substance: ROPINIROLE HYDROCHLORIDE
     Indication: Product used for unknown indication
     Route: 065
  14. ALLOPURINOL [Concomitant]
     Active Substance: ALLOPURINOL
     Indication: Product used for unknown indication
     Route: 065
  15. METOPROLOL SUCCINATE [Concomitant]
     Active Substance: METOPROLOL SUCCINATE
     Indication: Product used for unknown indication
     Route: 065
  16. ERGOCALCIFEROL [Concomitant]
     Active Substance: ERGOCALCIFEROL
     Indication: Product used for unknown indication
     Route: 065
  17. FARXIGA [Concomitant]
     Active Substance: DAPAGLIFLOZIN PROPANEDIOL
     Indication: Product used for unknown indication
     Route: 065
  18. TRIAMCINOLONE [Concomitant]
     Active Substance: TRIAMCINOLONE
     Indication: Product used for unknown indication
     Route: 065
  19. NITROGLYCERIN [Concomitant]
     Active Substance: NITROGLYCERIN
     Indication: Product used for unknown indication
     Route: 065
  20. METANX [Concomitant]
     Active Substance: LEVOMEFOLATE CALCIUM\METHYLCOBALAMIN\PYRIDOXAL PHOSPHATE ANHYDROUS
     Indication: Product used for unknown indication
     Route: 065
  21. lutein-zeaxanthin [Concomitant]
     Indication: Product used for unknown indication
     Route: 065

REACTIONS (4)
  - Coronary artery disease [Recovered/Resolved]
  - Angina unstable [Recovered/Resolved]
  - Coronary artery bypass [Recovered/Resolved]
  - Drug ineffective [Unknown]

NARRATIVE: CASE EVENT DATE: 20210915
